FAERS Safety Report 6567056-1 (Version None)
Quarter: 2010Q1

REPORT INFORMATION
  Report Type: 
  Country: None (occurrence: None)
  Receive Date: 20100127
  Receipt Date: 20100118
  Transmission Date: 20100710
  Serious: Yes (Life-Threatening)
  Sender: FDA-Public Use
  Company Number: 2010SP003685

PATIENT
  Age: 91 Year
  Sex: Female
  Weight: 58 kg

DRUGS (4)
  1. MIRTAZAPINE [Suspect]
     Dosage: 15 MG; QD; PO
     Route: 048
     Dates: start: 20051015, end: 20091121
  2. ATACAND [Suspect]
     Dosage: 15 MG; QD; PO
     Route: 048
     Dates: start: 20071015, end: 20091121
  3. NATRILIX SR (INDAPAMIDE) [Suspect]
     Dosage: 15 MG; QD; PO
     Route: 048
     Dates: start: 20080715, end: 20091121
  4. PERIVASC (AMLODIPINE) [Concomitant]

REACTIONS (3)
  - CONFUSIONAL STATE [None]
  - HYPONATRAEMIA [None]
  - SYNCOPE [None]
